FAERS Safety Report 24723339 (Version 1)
Quarter: 2024Q4

REPORT INFORMATION
  Report Type: Spontaneous
  Country: AU (occurrence: AU)
  Receive Date: 20241211
  Receipt Date: 20241211
  Transmission Date: 20250115
  Serious: Yes (Other)
  Sender: PURDUE
  Company Number: AU-NAPPMUNDI-GBR-2024-0121873

PATIENT
  Sex: Female

DRUGS (7)
  1. NORSPAN [Suspect]
     Active Substance: BUPRENORPHINE
     Indication: Pain
     Dosage: FOR YEARS NOW ONCE EVERY SEVEN DAYS
     Route: 062
     Dates: start: 2022
  2. NORSPAN [Suspect]
     Active Substance: BUPRENORPHINE
     Dosage: 15 (MCG/HR) ONCE EVERY SEVEN DAYS
     Route: 062
  3. PANADOL [Concomitant]
     Active Substance: ACETAMINOPHEN
     Indication: Product used for unknown indication
     Dosage: UNK
     Route: 065
  4. EXFORGE [Concomitant]
     Active Substance: AMLODIPINE BESYLATE\VALSARTAN
     Indication: Product used for unknown indication
     Dosage: UNK
     Route: 065
  5. CRESTOR [Concomitant]
     Active Substance: ROSUVASTATIN CALCIUM
     Indication: Product used for unknown indication
     Dosage: 10 MILLIGRAM
     Route: 065
  6. RABEPRAZOLE SODIUM [Concomitant]
     Active Substance: RABEPRAZOLE SODIUM
     Indication: Product used for unknown indication
     Dosage: 20 MILLIGRAM
     Route: 065
  7. EFFEXOR [Concomitant]
     Active Substance: VENLAFAXINE HYDROCHLORIDE
     Indication: Product used for unknown indication
     Dosage: 150 MILLIGRAM
     Route: 065

REACTIONS (3)
  - Stress [Not Recovered/Not Resolved]
  - Product dose omission issue [Unknown]
  - Product adhesion issue [Unknown]
